FAERS Safety Report 9737464 (Version 1)
Quarter: 2013Q4

REPORT INFORMATION
  Report Type: Spontaneous
  Country: ES (occurrence: ES)
  Receive Date: 20131206
  Receipt Date: 20131206
  Transmission Date: 20140711
  Serious: Yes (Other)
  Sender: FDA-Public Use
  Company Number: ES-ASTRAZENECA-2013SE87792

PATIENT
  Age: 66 Year
  Sex: Female

DRUGS (5)
  1. CRESTOR [Suspect]
     Indication: HYPERCHOLESTEROLAEMIA
     Route: 048
     Dates: start: 20131027
  2. OPIREN [Suspect]
     Route: 065
     Dates: start: 2012
  3. ADIRO [Concomitant]
     Route: 065
     Dates: start: 2012
  4. EUTIROX [Concomitant]
     Indication: HYPOTHYROIDISM
     Route: 065
     Dates: start: 2012
  5. NAVIXEN [Concomitant]
     Indication: HYPERTENSION
     Route: 065
     Dates: start: 2012

REACTIONS (1)
  - Androgenetic alopecia [Unknown]
